FAERS Safety Report 4471573-8 (Version None)
Quarter: 2004Q4

REPORT INFORMATION
  Report Type: 
  Country: None (occurrence: None)
  Receive Date: 20041012
  Receipt Date: 20041011
  Transmission Date: 20050328
  Serious: Yes (Hospitalization)
  Sender: FDA-Public Use
  Company Number: US-GLAXOSMITHKLINE-A0529349A

PATIENT
  Age: 64 Year
  Sex: Male

DRUGS (6)
  1. AVANDIA [Suspect]
     Route: 048
     Dates: start: 19990101
  2. GLYBURIDE [Concomitant]
     Dates: end: 20040201
  3. INDERAL [Concomitant]
     Indication: DRUG USE FOR UNKNOWN INDICATION
  4. ORUVAIL [Concomitant]
     Indication: DRUG USE FOR UNKNOWN INDICATION
  5. VITAMIN B-12 [Concomitant]
     Indication: DRUG USE FOR UNKNOWN INDICATION
  6. ANTIDIABETIC (UNSPECIFIED) [Concomitant]
     Dates: end: 20040201

REACTIONS (4)
  - DEHYDRATION [None]
  - FLUID RETENTION [None]
  - JOINT SWELLING [None]
  - OEDEMA PERIPHERAL [None]
